FAERS Safety Report 8481817-3 (Version None)
Quarter: 2012Q3

REPORT INFORMATION
  Report Type: 
  Country: None (occurrence: None)
  Receive Date: 20120702
  Receipt Date: 20120626
  Transmission Date: 20120928
  Serious: No
  Sender: FDA-Public Use
  Company Number: US-PFIZER INC-2012154715

PATIENT
  Age: 77 Year
  Sex: Male

DRUGS (3)
  1. VIAGRA [Suspect]
     Dosage: 25 MG, AS NEEDED
  2. VIAGRA [Suspect]
     Dosage: 100 MG, AS NEEDED
  3. VIAGRA [Suspect]
     Dosage: 300 MG, AS NEEDED

REACTIONS (2)
  - DRUG INEFFECTIVE [None]
  - INCORRECT DOSE ADMINISTERED [None]
